FAERS Safety Report 5665137-8 (Version None)
Quarter: 2008Q1

REPORT INFORMATION
  Report Type: 
  Country: None (occurrence: None)
  Receive Date: 20080314
  Receipt Date: 20080303
  Transmission Date: 20080703
  Serious: Yes (Other)
  Sender: FDA-Public Use
  Company Number: US-PFIZER INC-2008021841

PATIENT
  Sex: Female
  Weight: 57.727 kg

DRUGS (2)
  1. CHANTIX [Suspect]
     Indication: SMOKING CESSATION THERAPY
     Dates: start: 20070101, end: 20070101
  2. KLONOPIN [Concomitant]

REACTIONS (10)
  - AGGRESSION [None]
  - DECREASED INTEREST [None]
  - FEELING ABNORMAL [None]
  - HALLUCINATION [None]
  - IRRITABILITY [None]
  - LOSS OF LIBIDO [None]
  - PARANOIA [None]
  - PSYCHOTIC DISORDER [None]
  - SUICIDAL BEHAVIOUR [None]
  - THINKING ABNORMAL [None]
